FAERS Safety Report 7363033-1 (Version None)
Quarter: 2011Q1

REPORT INFORMATION
  Report Type: 
  Country: None (occurrence: None)
  Receive Date: 20110321
  Receipt Date: 20110311
  Transmission Date: 20110831
  Serious: Yes (Hospitalization, Other)
  Sender: FDA-Public Use
  Company Number: US-PFIZER INC-2006069862

PATIENT
  Sex: Female

DRUGS (5)
  1. NEURONTIN [Suspect]
     Dosage: 300 MG, TWICE A DAY, THRICE A DAY
     Dates: start: 20020324
  2. NEURONTIN [Suspect]
     Indication: ILL-DEFINED DISORDER
     Dosage: 300 MG, 3X/DAY
     Dates: start: 19990816
  3. NEURONTIN [Suspect]
     Dosage: 500 MG
     Dates: start: 20010201
  4. NEURONTIN [Suspect]
     Dosage: 1500 MG
     Dates: start: 20011109
  5. NEURONTIN [Suspect]
     Dosage: UNK
     Dates: start: 20000111

REACTIONS (1)
  - SUICIDE ATTEMPT [None]
